FAERS Safety Report 11802032 (Version 2)
Quarter: 2016Q1

REPORT INFORMATION
  Report Type: Spontaneous
  Country: US (occurrence: US)
  Receive Date: 20151204
  Receipt Date: 20160219
  Transmission Date: 20160525
  Serious: Yes (Other)
  Sender: FDA-Public Use
  Company Number: US-GLAXOSMITHKLINE-US2015GSK171532

PATIENT
  Age: 48 Year
  Sex: Female
  Weight: 88.89 kg

DRUGS (13)
  1. FISH OIL [Concomitant]
     Active Substance: FISH OIL
     Dosage: 1000 MG, UNK
  2. LAMICTAL XR [Suspect]
     Active Substance: LAMOTRIGINE
     Indication: PRODUCT USED FOR UNKNOWN INDICATION
     Dosage: 200 MG, QD
  3. ATENOLOL. [Concomitant]
     Active Substance: ATENOLOL
     Dosage: 50 MG, QD
  4. PLAQUENIL [Concomitant]
     Active Substance: HYDROXYCHLOROQUINE SULFATE
     Dosage: 200 MG, BID
  5. NORTRIPTYLINE [Concomitant]
     Active Substance: NORTRIPTYLINE
     Dosage: 25 MG, QD
  6. GLIMEPIRIDE. [Concomitant]
     Active Substance: GLIMEPIRIDE
     Dosage: 4 MG, BID
  7. AZATHIOPRINE. [Concomitant]
     Active Substance: AZATHIOPRINE
     Dosage: 50 MG, QD
  8. CETIRIZINE [Concomitant]
     Active Substance: CETIRIZINE HYDROCHLORIDE
  9. POTASSIUM GLUCONATE ELIXIR [Concomitant]
     Dosage: 1000 MG, QD
  10. PREDNISONE. [Suspect]
     Active Substance: PREDNISONE
     Indication: PRODUCT USED FOR UNKNOWN INDICATION
     Dosage: 20 MG, QD
  11. BACTRIM [Concomitant]
     Active Substance: SULFAMETHOXAZOLE\TRIMETHOPRIM
  12. GABAPENTIN. [Concomitant]
     Active Substance: GABAPENTIN
     Dosage: 300 MG, UNK
  13. MAGNESIUM [Concomitant]
     Active Substance: MAGNESIUM
     Dosage: 500 MG, QD

REACTIONS (34)
  - Polyarthritis [Unknown]
  - Anxiety [Unknown]
  - Bone lesion [Unknown]
  - Intervertebral disc degeneration [Unknown]
  - Seizure [Unknown]
  - Generalised tonic-clonic seizure [Unknown]
  - Sarcoidosis [Unknown]
  - Pulmonary sarcoidosis [Unknown]
  - Depression [Unknown]
  - Ichthyosis [Unknown]
  - Claustrophobia [Unknown]
  - Ageusia [Unknown]
  - Anosmia [Unknown]
  - Paraesthesia [Unknown]
  - Immunodeficiency [Unknown]
  - Myopia [Unknown]
  - Fibromyalgia [Unknown]
  - Migraine [Unknown]
  - Osteoporosis [Unknown]
  - Hypertension [Unknown]
  - Uterine leiomyoma [Unknown]
  - Nerve injury [Unknown]
  - Sciatica [Unknown]
  - Corrective lens user [Unknown]
  - Progesterone decreased [Unknown]
  - Alopecia [Unknown]
  - Petit mal epilepsy [Unknown]
  - Type 2 diabetes mellitus [Unknown]
  - Carpal tunnel syndrome [Unknown]
  - Diabetic neuropathy [Unknown]
  - Cardiomyopathy [Unknown]
  - Acute sinusitis [Unknown]
  - Sleep apnoea syndrome [Unknown]
  - Hypoaesthesia [Unknown]

NARRATIVE: CASE EVENT DATE: 201201
